FAERS Safety Report 4423205-2 (Version None)
Quarter: 2004Q3

REPORT INFORMATION
  Report Type: 
  Country: None (occurrence: None)
  Receive Date: 20040809
  Receipt Date: 20040809
  Transmission Date: 20050211
  Serious: No
  Sender: FDA-Public Use
  Company Number: None

PATIENT
  Age: 61 Year
  Sex: Female
  Weight: 72.5755 kg

DRUGS (1)
  1. CELEBREX [Suspect]
     Indication: OSTEOARTHRITIS
     Dosage: UP TO  2X DAY  WHEN NEEDE
     Dates: start: 20040208, end: 20040805

REACTIONS (3)
  - DISCOMFORT [None]
  - FEELING HOT [None]
  - URTICARIA [None]
